FAERS Safety Report 5165759-7 (Version None)
Quarter: 2006Q4

REPORT INFORMATION
  Report Type: 
  Country: None (occurrence: None)
  Receive Date: 20061128
  Receipt Date: 20061113
  Transmission Date: 20070319
  Serious: Yes (Other)
  Sender: FDA-Public Use
  Company Number: GXKR2006ES07347

PATIENT
  Age: 18 Year
  Sex: Female
  Weight: 55 kg

DRUGS (1)
  1. AMOXICILLIN SODIUM+POTASSIUM CLAVULANATE [Suspect]
     Indication: INFECTION
     Dosage: 500/125 MG TID, UNK
     Dates: start: 20061107, end: 20061109

REACTIONS (3)
  - FLUSHING [None]
  - PRURITUS [None]
  - URTICARIA [None]
